FAERS Safety Report 16437870 (Version 5)
Quarter: 2021Q1

REPORT INFORMATION
  Report Type: Spontaneous
  Country: US (occurrence: US)
  Receive Date: 20190616
  Receipt Date: 20210106
  Transmission Date: 20210419
  Serious: Yes (Hospitalization, Other)
  Sender: FDA-Public Use
  Company Number: US-KOWA-18US002335

PATIENT

DRUGS (24)
  1. LIVALO [Suspect]
     Active Substance: PITAVASTATIN CALCIUM
     Indication: BLOOD CHOLESTEROL
     Dosage: 2 MG, QD
     Dates: start: 20180612, end: 20180930
  2. LIVALO [Suspect]
     Active Substance: PITAVASTATIN CALCIUM
     Dosage: 2 MG, QD
     Dates: start: 20181008
  3. VERAPAMIL [Concomitant]
     Active Substance: VERAPAMIL HYDROCHLORIDE
     Indication: HYPERTENSION
     Dosage: 240 MG, QD
  4. BUMETANIDE. [Concomitant]
     Active Substance: BUMETANIDE
     Indication: HYPERTENSION
     Dosage: 1 MG, QD
  5. MONTELUKAST [Concomitant]
     Active Substance: MONTELUKAST SODIUM
     Indication: HYPERSENSITIVITY
     Dosage: 10 MG, QD
  6. LOSARTAN. [Concomitant]
     Active Substance: LOSARTAN
     Indication: HYPERTENSION
     Dosage: 50 MG, BID
     Dates: start: 1998
  7. MEDROL [METHYLPREDNISOLONE ACETATE] [Concomitant]
     Active Substance: METHYLPREDNISOLONE ACETATE
     Indication: SCAR
     Dosage: 4 MG, QD
     Dates: start: 2007, end: 20201122
  8. METFORMIN ER [Concomitant]
     Active Substance: METFORMIN HYDROCHLORIDE
     Dosage: 1500 UNK
     Dates: start: 2020
  9. LEVOTHROID [Concomitant]
     Active Substance: LEVOTHYROXINE SODIUM
     Indication: HYPOTHYROIDISM
     Dosage: 150 ?G, QD
     Dates: start: 1988
  10. METFORMIN ER [Concomitant]
     Active Substance: METFORMIN HYDROCHLORIDE
     Dosage: 1000 MG, BID
     Dates: start: 20201220
  11. ANTARA [FENOFIBRATE] [Concomitant]
     Indication: BLOOD TRIGLYCERIDES
     Dosage: UNK
     Dates: start: 20201207
  12. METHYLPREDNISOLONE. [Concomitant]
     Active Substance: METHYLPREDNISOLONE
     Indication: PRODUCT USED FOR UNKNOWN INDICATION
     Dosage: UNK
     Dates: start: 2012
  13. DULCOLAX (BISACODYL) [Concomitant]
     Active Substance: BISACODYL
     Indication: CONSTIPATION
     Dosage: UNK, QD
  14. SELENIUM [Concomitant]
     Active Substance: SELENIUM
     Indication: PRODUCT USED FOR UNKNOWN INDICATION
     Dosage: UNK, TIW
  15. SYMBICORT [Concomitant]
     Active Substance: BUDESONIDE\FORMOTEROL FUMARATE DIHYDRATE
     Indication: ORGANISING PNEUMONIA
     Dosage: UNK, BID
  16. LEVALBUTEROL                       /01419301/ [Concomitant]
     Active Substance: LEVALBUTEROL
     Indication: DYSPNOEA
  17. METFORMIN ER [Concomitant]
     Active Substance: METFORMIN HYDROCHLORIDE
     Indication: PRODUCT USED FOR UNKNOWN INDICATION
     Dosage: 500 MG, QD
     Dates: start: 20201127
  18. ZYRTEC [Concomitant]
     Active Substance: CETIRIZINE HYDROCHLORIDE
     Indication: HYPERSENSITIVITY
     Dosage: 10 MG, QD
     Dates: start: 2019
  19. BIOTIN [Concomitant]
     Active Substance: BIOTIN
     Indication: ALOPECIA
     Dosage: 5000 ?G, QD
  20. FENOFIBRATE. [Suspect]
     Active Substance: FENOFIBRATE
     Indication: BLOOD TRIGLYCERIDES INCREASED
     Dosage: 145 MG, QD
     Dates: start: 20190708, end: 20190712
  21. METFORMIN ER [Concomitant]
     Active Substance: METFORMIN HYDROCHLORIDE
     Dosage: 1000 UNK
     Dates: start: 2020
  22. VITAMIN E                          /00110501/ [Concomitant]
     Active Substance: TOCOPHEROL
     Indication: PRODUCT USED FOR UNKNOWN INDICATION
     Dosage: 400 IU, BID
  23. PHILLIPS LAXCAPS [Concomitant]
     Indication: CONSTIPATION
     Dosage: UNK, QD
     Dates: start: 2019
  24. ALLOPURINOL. [Concomitant]
     Active Substance: ALLOPURINOL
     Indication: GOUT
     Dosage: UNK
     Dates: start: 20201123

REACTIONS (36)
  - Gait inability [Unknown]
  - Burning sensation [Recovering/Resolving]
  - Sinusitis [Recovered/Resolved]
  - Gait inability [Recovering/Resolving]
  - Diarrhoea [Recovered/Resolved]
  - Pain in extremity [Recovered/Resolved]
  - Glycosylated haemoglobin increased [Unknown]
  - Abdominal pain upper [Recovered/Resolved]
  - Hypoaesthesia [Recovering/Resolving]
  - Constipation [Recovered/Resolved]
  - Blood glucose increased [Unknown]
  - Abscess limb [Recovered/Resolved]
  - Feeling abnormal [Recovered/Resolved]
  - Peripheral swelling [Unknown]
  - Urinary tract infection [Recovering/Resolving]
  - Blood glucose increased [Not Recovered/Not Resolved]
  - Muscle spasms [Recovered/Resolved]
  - Gout [Recovered/Resolved]
  - Blood uric acid increased [Recovered/Resolved]
  - Malaise [Recovered/Resolved]
  - Abdominal pain [Recovering/Resolving]
  - Diverticulitis [Recovered/Resolved]
  - Discomfort [Recovered/Resolved]
  - Dyspnoea [Recovered/Resolved]
  - Pain [Recovering/Resolving]
  - Weight decreased [Not Recovered/Not Resolved]
  - Hepatic enzyme increased [Recovered/Resolved]
  - Back pain [Recovered/Resolved]
  - Malaise [Recovering/Resolving]
  - Bronchitis [Recovered/Resolved]
  - Liver function test increased [Unknown]
  - Abdominal distension [Recovered/Resolved]
  - Diverticulitis [Recovering/Resolving]
  - Blood triglycerides increased [Unknown]
  - Abdominal pain upper [Recovering/Resolving]
  - Hypoaesthesia [Recovered/Resolved]

NARRATIVE: CASE EVENT DATE: 20180718
